FAERS Safety Report 7906331-2 (Version None)
Quarter: 2011Q4

REPORT INFORMATION
  Report Type: 
  Country: None (occurrence: None)
  Receive Date: 20111109
  Receipt Date: 20111109
  Transmission Date: 20120403
  Serious: No
  Sender: FDA-Public Use
  Company Number: None

PATIENT
  Sex: Female
  Weight: 149.5963 kg

DRUGS (2)
  1. LEVONORGESTREL + ETHINYL ESTRADIOL [Suspect]
     Indication: MENORRHAGIA
     Dosage: 1 DAILY BY MOUTH
     Route: 048
     Dates: start: 20110801
  2. LEVONORGESTREL + ETHINYL ESTRADIOL [Suspect]
     Indication: MENSTRUATION IRREGULAR
     Dosage: 1 DAILY BY MOUTH
     Route: 048
     Dates: start: 20110801

REACTIONS (1)
  - MENOMETRORRHAGIA [None]
